FAERS Safety Report 5782981-7 (Version None)
Quarter: 2008Q2

REPORT INFORMATION
  Report Type: 
  Country: None (occurrence: None)
  Receive Date: 20080624
  Receipt Date: 20080616
  Transmission Date: 20081010
  Serious: Yes (Other)
  Sender: FDA-Public Use
  Company Number: GB-AVENTIS-200815761GDDC

PATIENT
  Age: 53 Year
  Sex: Female

DRUGS (2)
  1. TELFAST                            /01314201/ [Suspect]
     Route: 048
     Dates: start: 20080521, end: 20080523
  2. CETIRIZINE HCL [Concomitant]
     Route: 048

REACTIONS (1)
  - DIABETES MELLITUS INADEQUATE CONTROL [None]
